FAERS Safety Report 22004550 (Version 1)
Quarter: 2023Q1

REPORT INFORMATION
  Report Type: Spontaneous
  Country: US (occurrence: None)
  Receive Date: 20230214
  Receipt Date: 20230214
  Transmission Date: 20230418
  Serious: Yes (Other)
  Sender: FDA-Public Use
  Company Number: None

PATIENT
  Age: 15 Year
  Sex: Male
  Weight: 83.6 kg

DRUGS (1)
  1. OMNITROPE [Suspect]
     Active Substance: SOMATROPIN
     Dosage: OTHER STRENGTH : 10MG/1.5 ML;?FREQUENCY : DAILY;?
     Route: 058
     Dates: start: 20221228

REACTIONS (2)
  - Wrong technique in product usage process [None]
  - Accidental overdose [None]

NARRATIVE: CASE EVENT DATE: 20221228
